FAERS Safety Report 5976766-6 (Version None)
Quarter: 2008Q4

REPORT INFORMATION
  Report Type: 
  Country: None (occurrence: None)
  Receive Date: 20081201
  Receipt Date: 20081201
  Transmission Date: 20090506
  Serious: No
  Sender: FDA-Public Use
  Company Number: None

PATIENT
  Age: 60 Year
  Sex: Female

DRUGS (1)
  1. DURAGESIC-12 [Suspect]
     Indication: BACK PAIN
     Dosage: 12 MCG 72HRS. 25 MCG 72HRS.

REACTIONS (3)
  - APPLICATION SITE PRURITUS [None]
  - APPLICATION SITE REACTION [None]
  - ERYTHEMA [None]
